FAERS Safety Report 6007200-8 (Version None)
Quarter: 2008Q4

REPORT INFORMATION
  Report Type: 
  Country: None (occurrence: None)
  Receive Date: 20081217
  Receipt Date: 20080219
  Transmission Date: 20090506
  Serious: No
  Sender: FDA-Public Use
  Company Number: US-ASTRAZENECA-2008UW03371

PATIENT
  Sex: Male

DRUGS (3)
  1. CRESTOR [Suspect]
     Route: 048
     Dates: start: 20070101
  2. NIACIN [Concomitant]
  3. PEPCID [Concomitant]

REACTIONS (3)
  - ERYTHEMA [None]
  - RASH MACULO-PAPULAR [None]
  - URTICARIA [None]
